FAERS Safety Report 8075801-1 (Version None)
Quarter: 2012Q1

REPORT INFORMATION
  Report Type: 
  Country: None (occurrence: None)
  Receive Date: 20120127
  Receipt Date: 20120116
  Transmission Date: 20120608
  Serious: Yes (Other)
  Sender: FDA-Public Use
  Company Number: US-ELI_LILLY_AND_COMPANY-US201102004422

PATIENT
  Sex: Female
  Weight: 52.154 kg

DRUGS (15)
  1. FORTEO [Suspect]
     Dosage: 20 UG, QD
  2. FORTEO [Suspect]
     Dosage: 20 UG, DAILY (1/D)
  3. FISH OIL [Concomitant]
  4. FORTEO [Suspect]
     Dosage: 20 UG, QD
     Route: 065
  5. FORTEO [Suspect]
     Dosage: 20 UG, QD
     Route: 065
  6. MULTI-VITAMIN [Concomitant]
  7. ASPIRIN [Concomitant]
  8. SIMVASTATIN [Concomitant]
  9. SYNTHROID [Concomitant]
     Indication: THYROID DISORDER
     Dosage: UNK
  10. AMLODIPINE BESYLATE [Concomitant]
     Indication: BLOOD PRESSURE
     Dosage: 2.5 MG, UNK
  11. VITAMIN D [Concomitant]
  12. FORTEO [Suspect]
     Indication: OSTEOPOROSIS
     Dosage: 20 UG, DAILY (1/D)
     Dates: start: 20110128
  13. SERTRALINE HYDROCHLORIDE [Concomitant]
     Dosage: 0.5 DF, EACH EVENING
  14. CALCIUM [Concomitant]
  15. PLAVIX [Concomitant]
     Indication: CARDIAC DISORDER

REACTIONS (26)
  - ARTHRALGIA [None]
  - DYSPNOEA [None]
  - SPINAL DISORDER [None]
  - RASH MACULAR [None]
  - RASH [None]
  - GAIT DISTURBANCE [None]
  - BALANCE DISORDER [None]
  - WEIGHT DECREASED [None]
  - GASTRITIS [None]
  - MYALGIA [None]
  - NERVE COMPRESSION [None]
  - NAUSEA [None]
  - INTESTINAL OBSTRUCTION [None]
  - PAIN IN EXTREMITY [None]
  - DYSKINESIA [None]
  - FALL [None]
  - ARTHRITIS [None]
  - PRURITUS [None]
  - ARTHROPATHY [None]
  - CHEST PAIN [None]
  - PAIN [None]
  - CONTUSION [None]
  - RIB FRACTURE [None]
  - BACK PAIN [None]
  - ABDOMINAL PAIN UPPER [None]
  - DRUG DOSE OMISSION [None]
